FAERS Safety Report 4678977-9 (Version None)
Quarter: 2005Q2

REPORT INFORMATION
  Report Type: 
  Country: None (occurrence: None)
  Receive Date: 20050531
  Receipt Date: 20050526
  Transmission Date: 20051028
  Serious: Yes (Life-Threatening, Disabling)
  Sender: FDA-Public Use
  Company Number: A0560284A

PATIENT
  Age: 55 Year
  Sex: Female

DRUGS (7)
  1. AVANDIA [Suspect]
     Dosage: 2 MG/PER DAY; ORAL
     Route: 048
     Dates: start: 20050101, end: 20050512
  2. PIOGLITAZONE HCL [Suspect]
     Dosage: 15 MG/PER DAY/ ORAL
     Route: 048
     Dates: start: 20050523, end: 20050525
  3. GLIPIZIDE [Concomitant]
  4. SIMVASTATIN [Concomitant]
  5. CELECOXIB [Concomitant]
  6. ASPIRIN [Concomitant]
  7. PREMPRO (PREMARIN;CYCRIN 14/14) [Concomitant]

REACTIONS (9)
  - CARDIOMEGALY [None]
  - CHEST X-RAY ABNORMAL [None]
  - ELECTROCARDIOGRAM ABNORMAL [None]
  - OXYGEN SATURATION ABNORMAL [None]
  - PEAK EXPIRATORY FLOW RATE ABNORMAL [None]
  - RESPIRATION ABNORMAL [None]
  - SPIROMETRY ABNORMAL [None]
  - TREATMENT NONCOMPLIANCE [None]
  - WHEEZING [None]
